FAERS Safety Report 20838606 (Version 1)
Quarter: 2022Q2

REPORT INFORMATION
  Report Type: Spontaneous
  Country: US (occurrence: None)
  Receive Date: 20220516
  Receipt Date: 20220516
  Transmission Date: 20220721
  Serious: No
  Sender: FDA-Public Use
  Company Number: None

PATIENT
  Age: 31 Year
  Sex: Female
  Weight: 44.1 kg

DRUGS (1)
  1. GENTAMICIN [Suspect]
     Active Substance: GENTAMICIN
     Indication: Urinary tract infection
     Dosage: FREQUENCY : TWICE A DAY;?
     Route: 042
     Dates: start: 20220426, end: 20220507

REACTIONS (3)
  - Tinnitus [None]
  - Infusion related reaction [None]
  - Therapy interrupted [None]

NARRATIVE: CASE EVENT DATE: 20220508
